FAERS Safety Report 4777615-4 (Version None)
Quarter: 2005Q3

REPORT INFORMATION
  Report Type: 
  Country: None (occurrence: None)
  Receive Date: 20050921
  Receipt Date: 20050901
  Transmission Date: 20060218
  Serious: Yes (Other)
  Sender: FDA-Public Use
  Company Number: USA0509107106

PATIENT
  Age: 66 Year
  Sex: Female
  Weight: 91 kg

DRUGS (11)
  1. HUMULIN N [Suspect]
     Indication: DIABETES MELLITUS
     Dates: start: 19980101, end: 20030101
  2. HUMALOG [Suspect]
     Dosage: 14 U DAY
     Dates: start: 20030101
  3. DIOVAN [Concomitant]
  4. TRICOR [Concomitant]
  5. LASIX [Concomitant]
  6. TOPROL (METOPROLOL SUCCINATE) [Concomitant]
  7. ELAVIL [Concomitant]
  8. AMBIEN [Concomitant]
  9. GLUCOPHAGE [Concomitant]
  10. GLYBURIDE [Concomitant]
  11. INSULIN GLARGINE [Concomitant]

REACTIONS (4)
  - BLOOD GLUCOSE INCREASED [None]
  - GLYCOSYLATED HAEMOGLOBIN INCREASED [None]
  - PHARMACEUTICAL PRODUCT COMPLAINT [None]
  - RENAL FAILURE [None]
